FAERS Safety Report 6073545-9 (Version None)
Quarter: 2009Q1

REPORT INFORMATION
  Report Type: 
  Country: None (occurrence: None)
  Receive Date: 20090211
  Receipt Date: 20090209
  Transmission Date: 20090719
  Serious: Yes (Other)
  Sender: FDA-Public Use
  Company Number: ZA-ASTRAZENECA-2008SE05270

PATIENT
  Age: 43 Year
  Sex: Female
  Weight: 110 kg

DRUGS (3)
  1. MERONEM [Suspect]
     Indication: PSEUDOMONAS INFECTION
     Route: 042
     Dates: start: 20081008, end: 20081010
  2. MORPHINE [Concomitant]
     Indication: PAIN MANAGEMENT
     Dosage: 1 MG TO 5 MG EVERY ONE TO TWO HOURS
     Route: 042
  3. MIDAZOLAM HCL [Concomitant]
     Dosage: 1 MG TO 3 MG  EVERY ONE TO TWO HOURS
     Route: 042

REACTIONS (1)
  - GRAND MAL CONVULSION [None]
